FAERS Safety Report 13005271 (Version 1)
Quarter: 2016Q4

REPORT INFORMATION
  Report Type: Spontaneous
  Country: FR (occurrence: FR)
  Receive Date: 20161207
  Receipt Date: 20161207
  Transmission Date: 20170207
  Serious: Yes (Hospitalization)
  Sender: FDA-Public Use
  Company Number: FR-ORION CORPORATION ORION PHARMA-TREX2016-2526

PATIENT
  Age: 64 Year
  Sex: Male

DRUGS (3)
  1. ENTYVIO [Suspect]
     Active Substance: VEDOLIZUMAB
     Indication: COLITIS
     Route: 042
     Dates: start: 20160927
  2. CIFLOX [Interacting]
     Active Substance: CIPROFLOXACIN
     Indication: URINARY TRACT INFECTION
     Route: 065
     Dates: start: 20160919
  3. IMETH [Suspect]
     Active Substance: METHOTREXATE SODIUM
     Indication: COLITIS
     Route: 065
     Dates: start: 20160519, end: 20161002

REACTIONS (5)
  - Drug interaction [Unknown]
  - Interstitial lung disease [Unknown]
  - Product use issue [Unknown]
  - Urinary tract infection [Unknown]
  - Pneumocystis jirovecii pneumonia [Unknown]

NARRATIVE: CASE EVENT DATE: 20160519
